FAERS Safety Report 5661669-7 (Version None)
Quarter: 2008Q1

REPORT INFORMATION
  Report Type: 
  Country: None (occurrence: None)
  Receive Date: 20080312
  Receipt Date: 20080311
  Transmission Date: 20080703
  Serious: Yes (Other)
  Sender: FDA-Public Use
  Company Number: BE-BRISTOL-MYERS SQUIBB COMPANY-14022115

PATIENT
  Age: 57 Year
  Sex: Female
  Weight: 60 kg

DRUGS (1)
  1. KENACORT [Suspect]
     Indication: CARPAL TUNNEL SYNDROME
     Route: 053
     Dates: start: 20071107

REACTIONS (1)
  - ADVERSE EVENT [None]
